APPROVED DRUG PRODUCT: MAGNESIUM SULFATE
Active Ingredient: MAGNESIUM SULFATE
Strength: 5GM/10ML (500MG/ML)
Dosage Form/Route: SOLUTION;INTRAMUSCULAR, INTRAVENOUS
Application: A206039 | Product #001
Applicant: EXELA PHARMA SCIENCES LLC
Approved: Dec 18, 2014 | RLD: No | RS: No | Type: DISCN